FAERS Safety Report 6982026-7 (Version None)
Quarter: 2010Q3

REPORT INFORMATION
  Report Type: 
  Country: None (occurrence: None)
  Receive Date: 20100914
  Receipt Date: 20091109
  Transmission Date: 20110219
  Serious: No
  Sender: FDA-Public Use
  Company Number: US-PFIZER INC-2009296216

PATIENT
  Age: 44 Year
  Sex: Male
  Weight: 86 kg

DRUGS (4)
  1. LYRICA [Suspect]
     Indication: CONVULSION
     Dosage: 50 MG, 2X/DAY
     Route: 048
     Dates: start: 20091001
  2. DILANTIN [Concomitant]
  3. ATIVAN [Concomitant]
  4. RISPERDAL [Concomitant]

REACTIONS (2)
  - DRUG INEFFECTIVE [None]
  - DYSPHAGIA [None]
